FAERS Safety Report 8379939-0 (Version None)
Quarter: 2012Q1

REPORT INFORMATION
  Report Type: 
  Country: None (occurrence: None)
  Receive Date: 20120323
  Receipt Date: 20110404
  Transmission Date: 20120608
  Serious: Yes (Hospitalization)
  Sender: FDA-Public Use
  Company Number: 163-21880-11040414

PATIENT
  Age: 89 Year
  Sex: Female

DRUGS (9)
  1. IRON (IRON) [Concomitant]
  2. FISH OIL (FISH OIL) [Concomitant]
  3. PROTONIX [Concomitant]
  4. FLUTICASONE PROPIONATE [Concomitant]
  5. CALCIUM +D (OS-CAL) [Concomitant]
  6. LEXAPRO [Concomitant]
  7. REVLIMID [Suspect]
     Indication: MYELODYSPLASTIC SYNDROME
     Dosage: 10 MG, DAILY FOR 21 DAYS, PO
     Route: 048
     Dates: start: 20080722
  8. MULTIVITAMIN [Concomitant]
  9. ALPRAZOLAM [Concomitant]

REACTIONS (1)
  - DISEASE PROGRESSION [None]
